FAERS Safety Report 24776781 (Version 1)
Quarter: 2024Q4

REPORT INFORMATION
  Report Type: Spontaneous
  Country: AU (occurrence: AU)
  Receive Date: 20241226
  Receipt Date: 20241226
  Transmission Date: 20250115
  Serious: Yes (Other)
  Sender: TEVA
  Company Number: AU-TEVA-VS-3277999

PATIENT
  Sex: Female

DRUGS (2)
  1. AJOVY [Suspect]
     Active Substance: FREMANEZUMAB-VFRM
     Indication: Product used for unknown indication
     Route: 065
  2. WARFARIN SODIUM [Concomitant]
     Active Substance: WARFARIN SODIUM
     Indication: Product used for unknown indication

REACTIONS (14)
  - Cardiac failure congestive [Unknown]
  - Arthralgia [Unknown]
  - Chest pain [Unknown]
  - Contusion [Unknown]
  - Dizziness [Unknown]
  - Dry mouth [Unknown]
  - Dyspnoea [Unknown]
  - Haemorrhage [Unknown]
  - Headache [Unknown]
  - Lethargy [Unknown]
  - Muscle spasms [Unknown]
  - Neck pain [Unknown]
  - Pain in extremity [Unknown]
  - Tinnitus [Unknown]
